FAERS Safety Report 14513359 (Version 1)
Quarter: 2018Q1

REPORT INFORMATION
  Report Type: Spontaneous
  Country: US (occurrence: US)
  Receive Date: 20180208
  Receipt Date: 20180208
  Transmission Date: 20180509
  Serious: Yes (Death)
  Sender: FDA-Public Use
  Company Number: None

PATIENT
  Age: 75 Year
  Sex: Male
  Weight: 82.2 kg

DRUGS (1)
  1. BRENTUXIMAB [Suspect]
     Active Substance: BRENTUXIMAB VEDOTIN
     Indication: NON-HODGKIN^S LYMPHOMA
     Dosage: ?          OTHER FREQUENCY:ONCE;?
     Route: 042
     Dates: start: 20180105, end: 20180105

REACTIONS (5)
  - Tachycardia [None]
  - Chest X-ray abnormal [None]
  - Dyspnoea [None]
  - Tremor [None]
  - Tachypnoea [None]

NARRATIVE: CASE EVENT DATE: 20180105
